FAERS Safety Report 18735146 (Version 1)
Quarter: 2021Q1

REPORT INFORMATION
  Report Type: Spontaneous
  Country: US (occurrence: US)
  Receive Date: 20210113
  Receipt Date: 20210113
  Transmission Date: 20210419
  Serious: Yes (Hospitalization)
  Sender: FDA-Public Use
  Company Number: None

PATIENT
  Age: 73 Year
  Sex: Female
  Weight: 83.8 kg

DRUGS (11)
  1. ATENOLOL. [Concomitant]
     Active Substance: ATENOLOL
  2. FLUTICASONE NASAL [Concomitant]
     Active Substance: FLUTICASONE
  3. OMEGA 3 FATTY ACIDS [Concomitant]
     Active Substance: OMEGA-3 FATTY ACIDS
  4. BAMLANIVIMAB FOR EUA [Suspect]
     Active Substance: BAMLANIVIMAB
     Indication: COVID-19
     Dates: start: 20201229, end: 20201229
  5. LETROZOLE. [Concomitant]
     Active Substance: LETROZOLE
  6. LORAZEPAM. [Concomitant]
     Active Substance: LORAZEPAM
  7. GABAPENTIN. [Concomitant]
     Active Substance: GABAPENTIN
  8. HYDRALAZINE [Concomitant]
     Active Substance: HYDRALAZINE HYDROCHLORIDE
  9. SIMAVASTATIN [Concomitant]
  10. AMLODIPINE [Concomitant]
     Active Substance: AMLODIPINE BESYLATE
  11. ONDASETRON [Concomitant]
     Active Substance: ONDANSETRON

REACTIONS (7)
  - Lung opacity [None]
  - Headache [None]
  - Oxygen saturation decreased [None]
  - Dyspnoea [None]
  - Chest discomfort [None]
  - Nausea [None]
  - Infusion related reaction [None]

NARRATIVE: CASE EVENT DATE: 20201229
